FAERS Safety Report 9517625 (Version 1)
Quarter: 2013Q3

REPORT INFORMATION
  Report Type: Spontaneous
  Country: US (occurrence: US)
  Receive Date: 20130912
  Receipt Date: 20130912
  Transmission Date: 20140515
  Serious: No
  Sender: FDA-Public Use
  Company Number: US-009507513-1309USA004477

PATIENT
  Age: 35 Year
  Sex: Female

DRUGS (4)
  1. DULERA [Suspect]
     Indication: ASTHMA
     Dosage: UNK
     Route: 055
     Dates: start: 201308, end: 2013
  2. DULERA [Suspect]
     Dosage: UNK
     Route: 055
     Dates: start: 2013, end: 2013
  3. XYZAL [Concomitant]
  4. PATANASE [Concomitant]

REACTIONS (2)
  - Muscle spasms [Recovered/Resolved]
  - Muscle spasms [Recovered/Resolved]
